FAERS Safety Report 5757530-X (Version None)
Quarter: 2008Q2

REPORT INFORMATION
  Report Type: 
  Country: None (occurrence: None)
  Receive Date: 20080603
  Receipt Date: 20080522
  Transmission Date: 20081010
  Serious: Yes (Other)
  Sender: FDA-Public Use
  Company Number: US-PFIZER INC-2008045408

PATIENT
  Sex: Male
  Weight: 100 kg

DRUGS (9)
  1. CHANTIX [Suspect]
     Indication: SMOKING CESSATION THERAPY
  2. LEXAPRO [Concomitant]
  3. ALL OTHER THERAPEUTIC PRODUCTS [Concomitant]
  4. ULTRACET [Concomitant]
  5. WARFARIN SODIUM [Concomitant]
  6. PLAVIX [Concomitant]
  7. LISINOPRIL [Concomitant]
  8. TRAZODONE HCL [Concomitant]
  9. ANTIBIOTICS [Concomitant]

REACTIONS (7)
  - CARDIOVASCULAR INSUFFICIENCY [None]
  - GAIT DISTURBANCE [None]
  - HEADACHE [None]
  - HYPERSENSITIVITY [None]
  - PHARYNGEAL OEDEMA [None]
  - PHARYNGOLARYNGEAL PAIN [None]
  - STENT PLACEMENT [None]
